FAERS Safety Report 22160649 (Version 1)
Quarter: 2023Q1

REPORT INFORMATION
  Report Type: Spontaneous
  Country: US (occurrence: US)
  Receive Date: 20230331
  Receipt Date: 20230331
  Transmission Date: 20230418
  Serious: Yes (Death, Hospitalization, Other)
  Sender: FDA-Public Use
  Company Number: US-GLAXOSMITHKLINE-US2023GSK045686

PATIENT

DRUGS (6)
  1. ALBUTEROL [Interacting]
     Active Substance: ALBUTEROL
     Indication: Respiratory distress
     Dosage: UNK
  2. PROPRANOLOL [Interacting]
     Active Substance: PROPRANOLOL HYDROCHLORIDE
     Indication: Peripheral artery aneurysm
     Dosage: UNK
  3. ASPIRIN [Concomitant]
     Active Substance: ASPIRIN
     Indication: Peripheral artery aneurysm
     Dosage: UNK
  4. ENOXAPARIN [Concomitant]
     Active Substance: ENOXAPARIN
     Indication: Thrombosis
     Dosage: UNK
  5. CLOPIDOGREL [Concomitant]
     Active Substance: CLOPIDOGREL BISULFATE
     Indication: Thrombosis
     Dosage: UNK
  6. RIVAROXABAN [Concomitant]
     Active Substance: RIVAROXABAN
     Indication: Coronary artery aneurysm
     Dosage: UNK

REACTIONS (4)
  - Left ventricular failure [Fatal]
  - Therapy non-responder [Fatal]
  - Pulseless electrical activity [Unknown]
  - Cardiac arrest [Unknown]
